FAERS Safety Report 4286824-2 (Version None)
Quarter: 2004Q1

REPORT INFORMATION
  Report Type: 
  Country: None (occurrence: None)
  Receive Date: 20040206
  Receipt Date: 20040129
  Transmission Date: 20041129
  Serious: Yes (Disabling)
  Sender: FDA-Public Use
  Company Number: FR-ROCHE-357514

PATIENT
  Age: 44 Year
  Sex: Female
  Weight: 83 kg

DRUGS (8)
  1. VALIUM [Suspect]
     Indication: ANXIETY
     Route: 048
     Dates: start: 20030501
  2. RELPAX [Suspect]
     Indication: MIGRAINE
     Route: 048
     Dates: start: 20031107, end: 20031107
  3. BI-TILDIEM [Suspect]
     Indication: DRUG USE FOR UNKNOWN INDICATION
     Route: 048
     Dates: start: 20030501
  4. DRIPTANE [Suspect]
     Indication: URINARY INCONTINENCE
     Route: 048
     Dates: start: 20030501
  5. DRIPTANE [Suspect]
     Route: 048
  6. LEVOTHYROX [Suspect]
     Route: 048
     Dates: start: 20030501
  7. PROZAC [Suspect]
     Route: 048
     Dates: start: 20030501
  8. IMIGRANE [Concomitant]
     Route: 045
     Dates: start: 20031223

REACTIONS (2)
  - AMAUROSIS [None]
  - AMNESIA [None]
